FAERS Safety Report 21119484 (Version 1)
Quarter: 2022Q3

REPORT INFORMATION
  Report Type: Spontaneous
  Country: US (occurrence: US)
  Receive Date: 20220722
  Receipt Date: 20220722
  Transmission Date: 20221026
  Serious: Yes (Hospitalization, Other)
  Sender: FDA-Public Use
  Company Number: US-PFIZER INC-PV202200019447

PATIENT
  Age: 88 Year
  Sex: Male

DRUGS (6)
  1. GENTAMICIN SULFATE [Suspect]
     Active Substance: GENTAMICIN SULFATE
     Indication: Endocarditis
     Dosage: UNK
  2. GENTAMICIN SULFATE [Suspect]
     Active Substance: GENTAMICIN SULFATE
     Indication: Staphylococcal bacteraemia
  3. CEFAZOLIN [Concomitant]
     Active Substance: CEFAZOLIN
     Indication: Endocarditis
     Dosage: UNK
  4. CEFAZOLIN [Concomitant]
     Active Substance: CEFAZOLIN
     Indication: Staphylococcal bacteraemia
  5. RIFAMPIN [Concomitant]
     Active Substance: RIFAMPIN
     Indication: Endocarditis
     Dosage: UNK
  6. RIFAMPIN [Concomitant]
     Active Substance: RIFAMPIN
     Indication: Staphylococcal bacteraemia

REACTIONS (2)
  - Acute kidney injury [Unknown]
  - Blood creatinine increased [Unknown]
